FAERS Safety Report 20317574 (Version 1)
Quarter: 2022Q1

REPORT INFORMATION
  Report Type: Spontaneous
  Country: US (occurrence: None)
  Receive Date: 20220107
  Receipt Date: 20220107
  Transmission Date: 20220423
  Serious: No
  Sender: FDA-Public Use
  Company Number: None

PATIENT
  Age: 34 Year
  Sex: Female

DRUGS (1)
  1. CARBOPLATIN [Suspect]
     Active Substance: CARBOPLATIN

REACTIONS (6)
  - Erythema [None]
  - Burning sensation [None]
  - Pruritus [None]
  - Urticaria [None]
  - Erythema [None]
  - Blood pressure increased [None]

NARRATIVE: CASE EVENT DATE: 20211213
